FAERS Safety Report 14648780 (Version 1)
Quarter: 2018Q1

REPORT INFORMATION
  Report Type: Spontaneous
  Country: CN (occurrence: CN)
  Receive Date: 20180316
  Receipt Date: 20180316
  Transmission Date: 20180509
  Serious: Yes (Other)
  Sender: FDA-Public Use
  Company Number: CN-PFIZER INC-2018102742

PATIENT

DRUGS (2)
  1. MYCOPHENOLATE SODIUM [Interacting]
     Active Substance: MYCOPHENOLATE SODIUM
     Dosage: UNK
  2. VFEND [Suspect]
     Active Substance: VORICONAZOLE
     Dosage: UNK

REACTIONS (3)
  - Altered state of consciousness [Unknown]
  - Drug interaction [Unknown]
  - Hypoglycaemia [Unknown]
